FAERS Safety Report 6046420-3 (Version None)
Quarter: 2009Q1

REPORT INFORMATION
  Report Type: 
  Country: None (occurrence: None)
  Receive Date: 20090121
  Receipt Date: 20090121
  Transmission Date: 20090719
  Serious: No
  Sender: FDA-Public Use
  Company Number: None

PATIENT
  Age: 31 Year
  Sex: Female
  Weight: 58.9676 kg

DRUGS (1)
  1. CLINORIL [Suspect]
     Indication: RHEUMATOID ARTHRITIS
     Dates: start: 19850519, end: 19871219

REACTIONS (10)
  - ABNORMAL BEHAVIOUR [None]
  - ASTHENIA [None]
  - ECONOMIC PROBLEM [None]
  - FAMILY STRESS [None]
  - HALLUCINATION, VISUAL [None]
  - IMPAIRED WORK ABILITY [None]
  - IMPRISONMENT [None]
  - PAIN [None]
  - PSYCHOTIC DISORDER [None]
  - UNEMPLOYMENT [None]
